FAERS Safety Report 14363742 (Version 1)
Quarter: 2018Q1

REPORT INFORMATION
  Report Type: Spontaneous
  Country: US (occurrence: US)
  Receive Date: 20180108
  Receipt Date: 20180108
  Transmission Date: 20180509
  Serious: Yes (Life-Threatening, Hospitalization, Disabling, Other)
  Sender: FDA-Public Use
  Company Number: None

PATIENT
  Age: 33 Year
  Sex: Male
  Weight: 99.79 kg

DRUGS (9)
  1. METOPROLOL. [Concomitant]
     Active Substance: METOPROLOL
  2. TEA [Concomitant]
     Active Substance: TEA LEAF
  3. WATER. [Concomitant]
     Active Substance: WATER
  4. CRANBERRY. [Concomitant]
     Active Substance: CRANBERRY
  5. LOPERAMIDE 2MG [Suspect]
     Active Substance: LOPERAMIDE
     Indication: DEPENDENCE
     Route: 048
     Dates: start: 2014, end: 2017
  6. GABAPENTIN. [Concomitant]
     Active Substance: GABAPENTIN
  7. LOPERAMIDE 2MG [Suspect]
     Active Substance: LOPERAMIDE
     Indication: DIARRHOEA
     Route: 048
     Dates: start: 2014, end: 2017
  8. KLONOPIN [Concomitant]
     Active Substance: CLONAZEPAM
  9. LOPERAMIDE 2MG [Suspect]
     Active Substance: LOPERAMIDE
     Indication: DRUG WITHDRAWAL SYNDROME
     Route: 048
     Dates: start: 2014, end: 2017

REACTIONS (5)
  - Tachycardia [None]
  - Syncope [None]
  - Hypertension [None]
  - Palpitations [None]
  - Head discomfort [None]

NARRATIVE: CASE EVENT DATE: 2017
